FAERS Safety Report 7416311-1 (Version None)
Quarter: 2011Q2

REPORT INFORMATION
  Report Type: 
  Country: None (occurrence: None)
  Receive Date: 20110414
  Receipt Date: 20110412
  Transmission Date: 20111010
  Serious: Yes (Hospitalization)
  Sender: FDA-Public Use
  Company Number: A0922933A

PATIENT
  Age: 66 Year
  Sex: Female
  Weight: 93.6 kg

DRUGS (28)
  1. ALBUTEROL SULFATE [Concomitant]
     Indication: ASTHMA
     Route: 055
     Dates: start: 20090101
  2. ACETAMINOPHEN [Concomitant]
     Dosage: 500MG AS REQUIRED
     Route: 048
     Dates: start: 20110406
  3. POTASSIUM CHLORIDE [Concomitant]
     Indication: SUPPLEMENTATION THERAPY
     Dosage: 10MEQ PER DAY
     Route: 048
     Dates: start: 20100201
  4. AMBIEN [Concomitant]
     Indication: INSOMNIA
     Dosage: 10MG AT NIGHT
     Route: 048
     Dates: start: 20090101
  5. SINGULAIR [Concomitant]
     Indication: ASTHMA
     Dosage: 10MG PER DAY
     Route: 048
     Dates: start: 20070301
  6. BENADRYL [Concomitant]
     Indication: INFUSION RELATED REACTION
     Dosage: 25MG PER DAY
     Route: 042
     Dates: start: 20110321
  7. CIPRO [Concomitant]
     Dosage: 500MG TWICE PER DAY
     Route: 048
     Dates: start: 20110214, end: 20110316
  8. NEXIUM [Concomitant]
     Dosage: 40MG PER DAY
     Route: 048
     Dates: start: 20040801
  9. LEVOTHYROXINE [Concomitant]
     Indication: THYROID DISORDER
     Dosage: 75MCG PER DAY
     Route: 048
     Dates: start: 20090101
  10. NORVASC [Concomitant]
     Indication: HYPERTENSION
     Dosage: 5MG PER DAY
     Route: 048
     Dates: start: 20100201
  11. LASIX [Concomitant]
     Dosage: 40MG PER DAY
     Route: 048
     Dates: start: 20100201
  12. VITAMIN D [Concomitant]
     Indication: SUPPLEMENTATION THERAPY
     Dosage: 50000U WEEKLY
     Route: 048
     Dates: start: 20100201
  13. NOVOLOG [Concomitant]
     Route: 058
     Dates: start: 20091001
  14. CRESTOR [Concomitant]
     Dosage: 10MG PER DAY
     Route: 048
     Dates: start: 20070301
  15. BENADRYL [Concomitant]
     Indication: PREMEDICATION
     Dosage: 50MG AS REQUIRED
     Route: 042
     Dates: start: 20110321
  16. OFATUMUMAB [Suspect]
     Route: 042
     Dates: start: 20110321
  17. MULTI-VITAMIN [Concomitant]
     Indication: SUPPLEMENTATION THERAPY
     Dosage: 1TAB PER DAY
     Route: 048
     Dates: start: 20070301
  18. DECADRON [Concomitant]
     Indication: PREMEDICATION
     Route: 042
     Dates: start: 20110321
  19. PREDNISONE [Concomitant]
     Dosage: 10MG THREE TIMES PER DAY
     Route: 048
     Dates: start: 20110214, end: 20110317
  20. LANTUS [Concomitant]
     Dosage: 42UNIT TWICE PER DAY
     Route: 058
     Dates: start: 20091001
  21. CLONIDINE [Concomitant]
     Indication: HYPERTENSION
     Dosage: .2MG TWICE PER DAY
     Route: 048
     Dates: start: 20100201
  22. SPIRIVA [Concomitant]
     Indication: ASTHMA
     Dosage: 18MCG PER DAY
     Dates: start: 20070301
  23. CIPRO [Concomitant]
     Dosage: 750MG TWICE PER DAY
     Route: 048
     Dates: start: 20110406
  24. MUCINEX DM [Concomitant]
     Dosage: 600MG TWICE PER DAY
     Route: 048
     Dates: start: 20090101
  25. TIMOLOL MALEATE [Concomitant]
     Indication: GLAUCOMA
     Dosage: .5PCT PER DAY
     Route: 047
     Dates: start: 20030501
  26. CIPRO [Concomitant]
     Dosage: 500MG TWICE PER DAY
     Route: 055
     Dates: start: 20110331
  27. SYMBICORT [Concomitant]
     Indication: ASTHMA
     Route: 048
     Dates: start: 20090101
  28. XALATAN [Concomitant]
     Indication: GLAUCOMA
     Dosage: .005PCT PER DAY
     Route: 047
     Dates: start: 20030501

REACTIONS (1)
  - LUNG INFECTION [None]
